FAERS Safety Report 10488648 (Version 1)
Quarter: 2014Q3

REPORT INFORMATION
  Report Type: Spontaneous
  Country: US (occurrence: None)
  Receive Date: 20140930
  Receipt Date: 20140930
  Transmission Date: 20150326
  Serious: Yes (Other)
  Sender: FDA-Public Use
  Company Number: 153733

PATIENT
  Age: 61 Year
  Sex: Male

DRUGS (2)
  1. CARBOPLATIN. [Suspect]
     Active Substance: CARBOPLATIN
     Indication: NEUROENDOCRINE CARCINOMA OF THE SKIN
  2. ETOPOSIDE INJ. 100MG/5ML [Suspect]
     Active Substance: ETOPOSIDE
     Indication: NEUROENDOCRINE CARCINOMA OF THE SKIN

REACTIONS (5)
  - Anaemia [None]
  - Pancytopenia [None]
  - Sepsis [None]
  - Neuroendocrine carcinoma of the skin [None]
  - Malignant neoplasm progression [None]
